FAERS Safety Report 5859643-0 (Version None)
Quarter: 2008Q3

REPORT INFORMATION
  Report Type: 
  Country: None (occurrence: None)
  Receive Date: 20080827
  Receipt Date: 20050305
  Transmission Date: 20090109
  Serious: Yes (Hospitalization)
  Sender: FDA-Public Use
  Company Number: US-JNJFOC-20080805438

PATIENT
  Age: 68 Year
  Sex: Female
  Weight: 79 kg

DRUGS (7)
  1. DOXIL [Suspect]
     Indication: RECTAL CANCER METASTATIC
     Dosage: CYCLE 1
     Route: 042
  2. BORTEZOMIB [Suspect]
     Indication: RECTAL CANCER METASTATIC
     Dosage: 1.2MG/M2, CYCLE 1
     Route: 042
  3. COLACE [Concomitant]
     Route: 065
  4. OXYCODONE HCL [Concomitant]
     Route: 065
  5. HUMALOG [Concomitant]
     Route: 065
  6. LENTIS INSULIN 33 [Concomitant]
     Route: 065
  7. VITAMIN B6 [Concomitant]
     Route: 065

REACTIONS (6)
  - DEHYDRATION [None]
  - LIVER FUNCTION TEST ABNORMAL [None]
  - NAUSEA [None]
  - PLATELET COUNT DECREASED [None]
  - SUPRAVENTRICULAR TACHYCARDIA [None]
  - VOMITING [None]
